FAERS Safety Report 23795803 (Version 1)
Quarter: 2024Q2

REPORT INFORMATION
  Report Type: Spontaneous
  Country: US (occurrence: US)
  Receive Date: 20240429
  Receipt Date: 20240429
  Transmission Date: 20240716
  Serious: No
  Sender: FDA-Public Use
  Company Number: US-Calliditas-2024CAL00622

PATIENT
  Age: 54 Year
  Sex: Male
  Weight: 119 kg

DRUGS (1)
  1. TARPEYO [Suspect]
     Active Substance: BUDESONIDE
     Indication: IgA nephropathy
     Dosage: 16MG (4MG CAPSULES) ONCE DAILY
     Route: 048
     Dates: start: 20230722, end: 202404

REACTIONS (6)
  - Hordeolum [Unknown]
  - Immune system disorder [Unknown]
  - Sinusitis [Unknown]
  - Limb discomfort [Unknown]
  - Muscular weakness [Unknown]
  - Myopathy [Unknown]
